FAERS Safety Report 7479439-6 (Version None)
Quarter: 2011Q2

REPORT INFORMATION
  Report Type: 
  Country: None (occurrence: None)
  Receive Date: 20110513
  Receipt Date: 20110511
  Transmission Date: 20111010
  Serious: Yes (Death, Hospitalization)
  Sender: FDA-Public Use
  Company Number: US-PFIZER INC-2011101879

PATIENT
  Sex: Male

DRUGS (2)
  1. AMLODIPINE BESYLATE [Suspect]
  2. TOPROL-XL [Suspect]

REACTIONS (2)
  - PULMONARY OEDEMA [None]
  - PERICARDIAL EFFUSION [None]
